FAERS Safety Report 11768854 (Version 5)
Quarter: 2016Q4

REPORT INFORMATION
  Report Type: Spontaneous
  Country: US (occurrence: US)
  Receive Date: 20151123
  Receipt Date: 20161227
  Transmission Date: 20170206
  Serious: No
  Sender: FDA-Public Use
  Company Number: US-PFIZER INC-2015393673

PATIENT
  Age: 89 Year
  Sex: Female

DRUGS (1)
  1. XELJANZ [Suspect]
     Active Substance: TOFACITINIB CITRATE
     Dosage: 5 MG, 2X/DAY
     Dates: start: 20151113

REACTIONS (2)
  - Peripheral swelling [Unknown]
  - Urinary tract infection [Unknown]

NARRATIVE: CASE EVENT DATE: 20151113
